FAERS Safety Report 25887839 (Version 1)
Quarter: 2025Q4

REPORT INFORMATION
  Report Type: Spontaneous
  Country: EU (occurrence: EU)
  Receive Date: 20251007
  Receipt Date: 20251007
  Transmission Date: 20260117
  Serious: Yes (Death, Hospitalization, Other)
  Sender: PIRAMAL
  Company Number: EU-PIRAMAL PHARMA LIMITED-2025-PPL-000563

PATIENT

DRUGS (9)
  1. SEVOFLURANE [Suspect]
     Active Substance: SEVOFLURANE
     Indication: Maintenance of anaesthesia
     Dosage: 1.0 VOL%
  2. SUFENTANIL [Suspect]
     Active Substance: SUFENTANIL
     Indication: Induction and maintenance of anaesthesia
     Dosage: 50 MICROGRAM
     Route: 042
  3. SUFENTANIL [Suspect]
     Active Substance: SUFENTANIL
     Dosage: 3.1 ?G PER KG
  4. PIRITRAMIDE [Suspect]
     Active Substance: PIRITRAMIDE
     Indication: Postoperative analgesia
     Dosage: UNK
  5. MIDAZOLAM [Suspect]
     Active Substance: MIDAZOLAM
     Indication: Induction of anaesthesia
     Dosage: 5 MILLIGRAM
     Route: 042
  6. FLUNITRAZEPAM [Concomitant]
     Active Substance: FLUNITRAZEPAM
     Indication: Premedication
     Dosage: 1 MILLIGRAM
  7. PANCURONIUM [Concomitant]
     Active Substance: PANCURONIUM
     Indication: Endotracheal intubation
     Dosage: 6 MILLIGRAM
     Route: 042
  8. PROPOFOL [Concomitant]
     Active Substance: PROPOFOL
     Indication: Cardiopulmonary bypass
     Dosage: 2.4 MILLIGRAM/KILOGRAM
  9. PROPOFOL [Concomitant]
     Active Substance: PROPOFOL
     Indication: Sedation

REACTIONS (7)
  - Drug-induced liver injury [Fatal]
  - Acidosis [Fatal]
  - Oliguria [Fatal]
  - Hypoxia [Fatal]
  - Confusional state [Fatal]
  - Hypotension [Fatal]
  - Pyrexia [Fatal]
